FAERS Safety Report 4320310-6 (Version None)
Quarter: 2004Q1

REPORT INFORMATION
  Report Type: 
  Country: None (occurrence: None)
  Receive Date: 20040317
  Receipt Date: 20040310
  Transmission Date: 20041129
  Serious: No
  Sender: FDA-Public Use
  Company Number: 2004GB00615

PATIENT
  Age: 47 Year
  Sex: Male

DRUGS (3)
  1. CRESTOR [Suspect]
     Indication: HYPERCHOLESTEROLAEMIA
     Dosage: 10M MG PO
     Route: 048
     Dates: start: 20040210, end: 20040223
  2. VITAMIN C [Concomitant]
  3. ANUSOL [Concomitant]

REACTIONS (4)
  - ABDOMINAL PAIN [None]
  - ALBUMINURIA [None]
  - HAEMATURIA [None]
  - POLYURIA [None]
